FAERS Safety Report 7518444-8 (Version None)
Quarter: 2011Q2

REPORT INFORMATION
  Report Type: 
  Country: None (occurrence: None)
  Receive Date: 20110601
  Receipt Date: 20110601
  Transmission Date: 20111010
  Serious: Yes (Life-Threatening, Hospitalization)
  Sender: FDA-Public Use
  Company Number: None

PATIENT
  Age: 37 Year
  Sex: Female
  Weight: 49.4421 kg

DRUGS (2)
  1. HUMIRA [Suspect]
     Indication: CROHN'S DISEASE
     Dates: start: 20040526, end: 20060425
  2. REMICADE [Suspect]
     Indication: CROHN'S DISEASE
     Dates: start: 19890627, end: 20090624

REACTIONS (2)
  - RENAL FAILURE [None]
  - ACUTE LYMPHOCYTIC LEUKAEMIA [None]
